FAERS Safety Report 22065864 (Version 3)
Quarter: 2023Q1

REPORT INFORMATION
  Report Type: Spontaneous
  Country: CA (occurrence: CA)
  Receive Date: 20230306
  Receipt Date: 20230317
  Transmission Date: 20230418
  Serious: Yes (Hospitalization)
  Sender: FDA-Public Use
  Company Number: CA-GLAXOSMITHKLINE-CA2023032622

PATIENT

DRUGS (17)
  1. ZEJULA [Suspect]
     Active Substance: NIRAPARIB
     Indication: Ovarian epithelial cancer
     Dosage: 200 MG, QD
     Route: 048
     Dates: start: 20230213
  2. ZEJULA [Suspect]
     Active Substance: NIRAPARIB
     Indication: Fallopian tube cancer
  3. ZEJULA [Suspect]
     Active Substance: NIRAPARIB
     Indication: Malignant peritoneal neoplasm
  4. INVOKANA [Concomitant]
     Active Substance: CANAGLIFLOZIN
     Indication: Product used for unknown indication
     Dosage: 300 MG, QD
  5. AMLODIPINE [Concomitant]
     Active Substance: AMLODIPINE BESYLATE
     Indication: Product used for unknown indication
     Dosage: 5 MG, QD
  6. IRBESARTAN [Concomitant]
     Active Substance: IRBESARTAN
     Indication: Product used for unknown indication
     Dosage: UNK
  7. HYDROCHLOROTHIAZIDE [Concomitant]
     Active Substance: HYDROCHLOROTHIAZIDE
     Indication: Product used for unknown indication
     Dosage: 150MG/12.5 ONCE DAILY
  8. ROSUVASTATIN [Concomitant]
     Active Substance: ROSUVASTATIN
     Indication: Product used for unknown indication
     Dosage: 40 MG, QD
  9. ASPIRIN [Concomitant]
     Active Substance: ASPIRIN
     Indication: Product used for unknown indication
     Dosage: 81 MG, QD
  10. JANUMET [Concomitant]
     Active Substance: METFORMIN HYDROCHLORIDE\SITAGLIPTIN PHOSPHATE
     Indication: Product used for unknown indication
     Dosage: 1000MG/50 TWICE DAILY
  11. ZOPICLONE [Concomitant]
     Active Substance: ZOPICLONE
     Indication: Product used for unknown indication
     Dosage: 7.5 MG AT BED TIME
  12. DULOXETINE [Concomitant]
     Active Substance: DULOXETINE
     Indication: Product used for unknown indication
     Dosage: 60 MG BEDTIME
  13. ZINC [Concomitant]
     Active Substance: ZINC
     Indication: Product used for unknown indication
     Dosage: 50 MG, QD
  14. VITAMIN D3 [Concomitant]
     Active Substance: CHOLECALCIFEROL
     Indication: Product used for unknown indication
     Dosage: 2500 IU, QD
  15. VITAMIN C [Concomitant]
     Active Substance: ASCORBIC ACID
     Indication: Product used for unknown indication
     Dosage: 1000 MG, QD
  16. CALCIUM [Concomitant]
     Active Substance: CALCIUM
     Indication: Product used for unknown indication
     Dosage: 600 MG, QD
  17. LORAZEPAM [Concomitant]
     Active Substance: LORAZEPAM
     Indication: Product used for unknown indication
     Dosage: UNK

REACTIONS (10)
  - Pain in extremity [Unknown]
  - Sciatica [Unknown]
  - Insomnia [Unknown]
  - Pain [Unknown]
  - Musculoskeletal pain [Unknown]
  - Arthralgia [Unknown]
  - Spondylitis [Unknown]
  - Scoliosis [Unknown]
  - Back pain [Not Recovered/Not Resolved]
  - Myalgia [Unknown]

NARRATIVE: CASE EVENT DATE: 20230307
